FAERS Safety Report 8155763-9 (Version None)
Quarter: 2012Q1

REPORT INFORMATION
  Report Type: 
  Country: None (occurrence: None)
  Receive Date: 20120222
  Receipt Date: 20120214
  Transmission Date: 20120608
  Serious: Yes (Other)
  Sender: FDA-Public Use
  Company Number: US-BAYER-2011-124559

PATIENT
  Sex: Female

DRUGS (4)
  1. FLONASE [Concomitant]
     Indication: HYPERSENSITIVITY
     Dosage: 2 SPRAYS, QD
     Dates: start: 20060101
  2. MIRENA [Suspect]
     Indication: CONTRACEPTION
     Dosage: 20 MCG/24HR, CONT
     Route: 015
     Dates: start: 20081201, end: 20111024
  3. COD LIVER [Concomitant]
     Dosage: UNK UNK, QD
     Dates: start: 20090201
  4. LEVOTHYROXINE SODIUM [Concomitant]
     Indication: HYPOTHYROIDISM
     Dosage: 75 MCG, QD
     Dates: start: 20080301

REACTIONS (2)
  - DEVICE DISLOCATION [None]
  - STRESS [None]
